FAERS Safety Report 14751470 (Version 1)
Quarter: 2018Q2

REPORT INFORMATION
  Report Type: Report from Study
  Country: US (occurrence: US)
  Receive Date: 20180412
  Receipt Date: 20180412
  Transmission Date: 20180711
  Serious: Yes (Hospitalization)
  Sender: FDA-Public Use
  Company Number: US-AMGEN-USASL2018047681

PATIENT
  Sex: Female

DRUGS (1)
  1. REPATHA [Suspect]
     Active Substance: EVOLOCUMAB
     Indication: BLOOD CHOLESTEROL INCREASED
     Dosage: Q2WK
     Route: 065

REACTIONS (5)
  - Erythema [Unknown]
  - Gait inability [Unknown]
  - Peripheral swelling [Unknown]
  - Limb mass [Unknown]
  - Joint swelling [Unknown]
